FAERS Safety Report 19103745 (Version 2)
Quarter: 2021Q2

REPORT INFORMATION
  Report Type: Report from Study
  Country: BE (occurrence: BE)
  Receive Date: 20210407
  Receipt Date: 20210428
  Transmission Date: 20210717
  Serious: Yes (Other)
  Sender: FDA-Public Use
  Company Number: BE-BRISTOL-MYERS SQUIBB COMPANY-BMS-2021-005182

PATIENT
  Age: 54 Year
  Sex: Female

DRUGS (2)
  1. IPILIMUMAB [Suspect]
     Active Substance: IPILIMUMAB
     Indication: MALIGNANT MELANOMA
     Dosage: UNK, Q3WK
     Route: 042
     Dates: start: 20210112
  2. NIVOLUMAB [Suspect]
     Active Substance: NIVOLUMAB
     Indication: MALIGNANT MELANOMA
     Dosage: UNK, Q3WK
     Route: 042
     Dates: start: 20210112

REACTIONS (26)
  - Pollakiuria [Not Recovered/Not Resolved]
  - Paraesthesia [Recovered/Resolved]
  - Acne [Unknown]
  - Abdominal discomfort [Unknown]
  - Fatigue [Not Recovered/Not Resolved]
  - Poor quality sleep [Unknown]
  - Change of bowel habit [Recovering/Resolving]
  - Rash [Unknown]
  - Hyperthyroidism [Unknown]
  - Enterocolitis [Unknown]
  - Colitis [Recovering/Resolving]
  - Arthralgia [Unknown]
  - Chest discomfort [Unknown]
  - Abnormal sensation in eye [Unknown]
  - Myalgia [Unknown]
  - Nasal congestion [Unknown]
  - Back pain [Unknown]
  - Faeces soft [Not Recovered/Not Resolved]
  - Abdominal pain [Not Recovered/Not Resolved]
  - Defaecation urgency [Not Recovered/Not Resolved]
  - Gastrointestinal hypermotility [Not Recovered/Not Resolved]
  - Hypothyroidism [Unknown]
  - Blister [Recovered/Resolved]
  - Negative thoughts [Unknown]
  - Flatulence [Not Recovered/Not Resolved]
  - Visual impairment [Unknown]

NARRATIVE: CASE EVENT DATE: 20210118
